FAERS Safety Report 10697692 (Version 1)
Quarter: 2015Q1

REPORT INFORMATION
  Report Type: Spontaneous
  Country: US (occurrence: None)
  Receive Date: 20150107
  Receipt Date: 20150107
  Transmission Date: 20150721
  Serious: Yes (Death, Hospitalization)
  Sender: FDA-Public Use
  Company Number: None

PATIENT
  Age: 82 Year
  Sex: Female
  Weight: 56.25 kg

DRUGS (8)
  1. METOPROLOL SUCCINATE (TOPROL X3) [Concomitant]
  2. OMEGA-3 FULLY ACIDS (FISH OIL) [Concomitant]
  3. ASPIRIN (BABY ASPIRIN) [Concomitant]
  4. PANTOPRAZOLE SODIUM [Concomitant]
     Active Substance: PANTOPRAZOLE SODIUM
  5. MAGNESIUM OXIDE. [Concomitant]
     Active Substance: MAGNESIUM OXIDE
  6. ACETAMINOPHEN. [Concomitant]
     Active Substance: ACETAMINOPHEN
  7. CALCIUM CARBONATO-VITAMIN D (CALCIUM + D PO) [Concomitant]
  8. CABOZANTINIB [Suspect]
     Active Substance: CABOZANTINIB
     Indication: THYROID CANCER
     Route: 048
     Dates: start: 20141002, end: 20141222

REACTIONS (6)
  - Dyspnoea [None]
  - Thyroid cancer metastatic [None]
  - Malignant neoplasm progression [None]
  - Toxicity to various agents [None]
  - Infection [None]
  - Hiatus hernia [None]

NARRATIVE: CASE EVENT DATE: 20150102
